FAERS Safety Report 7481196-4 (Version None)
Quarter: 2011Q2

REPORT INFORMATION
  Report Type: 
  Country: None (occurrence: None)
  Receive Date: 20110512
  Receipt Date: 20110512
  Transmission Date: 20111010
  Serious: Yes (Hospitalization)
  Sender: FDA-Public Use
  Company Number: None

PATIENT
  Age: 77 Year
  Sex: Female
  Weight: 68.0396 kg

DRUGS (1)
  1. CYMBALTA [Suspect]
     Indication: DEPRESSION
     Dosage: 60MG - REDUCED TO 30 MG 1-DAILY

REACTIONS (8)
  - PRURITUS [None]
  - DEHYDRATION [None]
  - POLLAKIURIA [None]
  - CONFUSIONAL STATE [None]
  - WEIGHT DECREASED [None]
  - ASTHENIA [None]
  - DECREASED APPETITE [None]
  - TRANSIENT ISCHAEMIC ATTACK [None]
